FAERS Safety Report 6857274-7 (Version None)
Quarter: 2010Q3

REPORT INFORMATION
  Report Type: 
  Country: None (occurrence: None)
  Receive Date: 20100719
  Receipt Date: 20100709
  Transmission Date: 20110219
  Serious: Yes (Hospitalization)
  Sender: FDA-Public Use
  Company Number: FR-KINGPHARMUSA00001-K201000866

PATIENT
  Age: 81 Year
  Sex: Male

DRUGS (3)
  1. ALTACE [Suspect]
     Dosage: 2.5 MG, QD
     Route: 048
     Dates: start: 20100428, end: 20100508
  2. TAHOR [Suspect]
     Dosage: 40 MG, QD
     Route: 048
     Dates: start: 20100401, end: 20100508
  3. PRASUGREL [Suspect]
     Dosage: UNK
     Route: 048
     Dates: start: 20100401

REACTIONS (2)
  - CYTOLYTIC HEPATITIS [None]
  - RHABDOMYOLYSIS [None]
